FAERS Safety Report 20328250 (Version 1)
Quarter: 2022Q1

REPORT INFORMATION
  Report Type: Spontaneous
  Country: US (occurrence: US)
  Receive Date: 20220112
  Receipt Date: 20220112
  Transmission Date: 20220423
  Serious: Yes (Hospitalization, Other)
  Sender: FDA-Public Use
  Company Number: US-PFIZER INC-202200026468

PATIENT
  Age: 64 Year
  Sex: Male

DRUGS (1)
  1. MEKTOVI [Suspect]
     Active Substance: BINIMETINIB
     Dosage: 15 MG
     Dates: start: 20211103

REACTIONS (2)
  - Septic shock [Unknown]
  - Renal disorder [Unknown]
